FAERS Safety Report 4894629-4 (Version None)
Quarter: 2006Q1

REPORT INFORMATION
  Report Type: 
  Country: None (occurrence: None)
  Receive Date: 20060127
  Receipt Date: 20050413
  Transmission Date: 20060701
  Serious: Yes (Other)
  Sender: FDA-Public Use
  Company Number: US-MERCK-0504USA02015

PATIENT
  Age: 61 Year
  Sex: Female
  Weight: 77 kg

DRUGS (4)
  1. VIOXX [Suspect]
     Indication: ARTHRITIS
     Route: 048
     Dates: start: 19991108, end: 20040101
  2. VIOXX [Suspect]
     Route: 048
     Dates: end: 20040101
  3. VIOXX [Suspect]
     Route: 048
  4. TYLENOL-500 [Concomitant]
     Route: 065

REACTIONS (19)
  - ABDOMINAL PAIN UPPER [None]
  - BACK PAIN [None]
  - CEREBROVASCULAR ACCIDENT [None]
  - CHEST PAIN [None]
  - COUGH [None]
  - FATIGUE [None]
  - GASTRITIS [None]
  - HEADACHE [None]
  - HYPERTENSION [None]
  - HYPOAESTHESIA [None]
  - KERATOCONJUNCTIVITIS SICCA [None]
  - MALAISE [None]
  - MUSCLE SPASMS [None]
  - MUSCULOSKELETAL CHEST PAIN [None]
  - NAUSEA [None]
  - PHLEBITIS SUPERFICIAL [None]
  - THROMBOPHLEBITIS SUPERFICIAL [None]
  - URINARY TRACT INFECTION [None]
  - VISION BLURRED [None]
